FAERS Safety Report 21310757 (Version 1)
Quarter: 2022Q3

REPORT INFORMATION
  Report Type: Spontaneous
  Country: FR (occurrence: FR)
  Receive Date: 20220909
  Receipt Date: 20220909
  Transmission Date: 20221027
  Serious: Yes (Hospitalization)
  Sender: FDA-Public Use
  Company Number: None

PATIENT
  Age: 64 Year
  Sex: Male
  Weight: 70 kg

DRUGS (21)
  1. CELLCEPT [Suspect]
     Active Substance: MYCOPHENOLATE MOFETIL
     Indication: Prophylaxis against transplant rejection
     Dosage: 500 MG*2/JOUR 8H 20 H
     Route: 065
     Dates: start: 20220526, end: 20220627
  2. FLUCONAZOLE [Suspect]
     Active Substance: FLUCONAZOLE
     Indication: Product used for unknown indication
     Route: 065
     Dates: start: 20220630, end: 20220707
  3. CILASTATIN SODIUM\IMIPENEM [Suspect]
     Active Substance: CILASTATIN SODIUM\IMIPENEM
     Indication: Febrile bone marrow aplasia
     Dosage: 1 G*3/JOUR
     Route: 065
     Dates: start: 20220624, end: 20220702
  4. NEORAL [Suspect]
     Active Substance: CYCLOSPORINE
     Indication: Bone marrow transplant rejection
     Route: 065
     Dates: start: 20220702
  5. NEORAL [Suspect]
     Active Substance: CYCLOSPORINE
     Dosage: 120 MG 8H 20 H
     Route: 065
     Dates: start: 20220620, end: 20220623
  6. METRONIDAZOLE [Suspect]
     Active Substance: METRONIDAZOLE
     Indication: Splenic infarction
     Dosage: 500 MG*3/JOUR
     Route: 065
     Dates: start: 20220701, end: 20220704
  7. AMIKACIN [Suspect]
     Active Substance: AMIKACIN
     Indication: Product used for unknown indication
     Route: 065
     Dates: start: 20220701, end: 20220702
  8. AMIKACIN [Suspect]
     Active Substance: AMIKACIN
     Route: 065
     Dates: start: 20220704, end: 20220704
  9. AMIKACIN [Suspect]
     Active Substance: AMIKACIN
     Route: 065
     Dates: start: 20220705, end: 20220706
  10. PAXLOVID [Suspect]
     Active Substance: NIRMATRELVIR\RITONAVIR
     Indication: COVID-19
     Dosage: 41 CYCLE MATIN ET SOIR PDT 5 JOURS
     Route: 065
     Dates: start: 20220630, end: 20220705
  11. ZOVIRAX [Suspect]
     Active Substance: ACYCLOVIR
     Indication: Product used for unknown indication
     Route: 065
     Dates: start: 20220706, end: 20220710
  12. ZOVIRAX [Suspect]
     Active Substance: ACYCLOVIR
     Route: 065
     Dates: start: 20220624, end: 20220630
  13. PIPERACILLIN SODIUM\TAZOBACTAM SODIUM [Suspect]
     Active Substance: PIPERACILLIN SODIUM\TAZOBACTAM SODIUM
     Indication: Febrile bone marrow aplasia
     Route: 065
     Dates: start: 20220614, end: 20220622
  14. PIPERACILLIN SODIUM\TAZOBACTAM SODIUM [Suspect]
     Active Substance: PIPERACILLIN SODIUM\TAZOBACTAM SODIUM
     Route: 065
     Dates: start: 20220608, end: 20220614
  15. PIPERACILLIN SODIUM\TAZOBACTAM SODIUM [Suspect]
     Active Substance: PIPERACILLIN SODIUM\TAZOBACTAM SODIUM
     Dosage: 4 G * 4/JOUR
     Route: 065
     Dates: start: 20220530, end: 20220604
  16. AMYLOCAINE HYDROCHLORIDE [Suspect]
     Active Substance: AMYLOCAINE HYDROCHLORIDE
     Indication: Febrile bone marrow aplasia
     Dosage: DOSE DE CHARGE : 25MG/KG
     Route: 065
     Dates: start: 20220614, end: 20220614
  17. AMYLOCAINE HYDROCHLORIDE [Suspect]
     Active Substance: AMYLOCAINE HYDROCHLORIDE
     Dosage: 20 MG/KG TOUTES LES 12 H
     Route: 065
     Dates: start: 20220614, end: 20220622
  18. FLUCONAZOLE [Suspect]
     Active Substance: FLUCONAZOLE
     Indication: Product used for unknown indication
     Dosage: A 8H
     Route: 065
     Dates: start: 20220625, end: 20220630
  19. FLUCONAZOLE [Suspect]
     Active Substance: FLUCONAZOLE
     Dosage: 1 FLACON/24 H A 8H
     Route: 065
     Dates: start: 20220624, end: 20220624
  20. LINEZOLID [Suspect]
     Active Substance: LINEZOLID
     Indication: Febrile bone marrow aplasia
     Dosage: 600 MG *2/JOUR
     Route: 065
     Dates: start: 20220610, end: 20220614
  21. CYCLOSPORINE [Suspect]
     Active Substance: CYCLOSPORINE
     Indication: Prophylaxis against transplant rejection
     Dosage: 105.9 MG *2/JOUR
     Route: 065
     Dates: start: 20220521

REACTIONS (2)
  - Coma [Recovered/Resolved]
  - Confusional state [Not Recovered/Not Resolved]

NARRATIVE: CASE EVENT DATE: 20220628
